FAERS Safety Report 23878211 (Version 1)
Quarter: 2024Q2

REPORT INFORMATION
  Report Type: Spontaneous
  Country: US (occurrence: None)
  Receive Date: 20240520
  Receipt Date: 20240520
  Transmission Date: 20240716
  Serious: Yes (Death)
  Sender: FDA-Public Use
  Company Number: None

PATIENT
  Age: 39 Year
  Sex: Female

DRUGS (1)
  1. BREXUCABTAGENE AUTOLEUCEL [Suspect]
     Active Substance: BREXUCABTAGENE AUTOLEUCEL

REACTIONS (11)
  - Hyperbilirubinaemia [None]
  - Fatigue [None]
  - Encephalopathy [None]
  - Liver disorder [None]
  - Immune effector cell-associated neurotoxicity syndrome [None]
  - Upper gastrointestinal haemorrhage [None]
  - Pancytopenia [None]
  - Fungaemia [None]
  - Clostridium difficile infection [None]
  - Pneumoperitoneum [None]
  - Renal impairment [None]

NARRATIVE: CASE EVENT DATE: 20240205
